FAERS Safety Report 6757149-8 (Version None)
Quarter: 2010Q2

REPORT INFORMATION
  Report Type: 
  Country: None (occurrence: None)
  Receive Date: 20100606
  Receipt Date: 20100524
  Transmission Date: 20101027
  Serious: Yes (Hospitalization, Other)
  Sender: FDA-Public Use
  Company Number: CA-ELI_LILLY_AND_COMPANY-CA201005006622

PATIENT
  Age: 89 Year
  Sex: Female

DRUGS (21)
  1. FORTEO [Suspect]
     Indication: OSTEOPOROSIS
     Dosage: 20 UG, DAILY (1/D)
     Dates: start: 20090205
  2. ARICEPT [Concomitant]
  3. RAMIPRIL [Concomitant]
  4. PANTOPRAZOLE [Concomitant]
  5. GABAPENTIN [Concomitant]
  6. METOPROLOL TARTRATE [Concomitant]
  7. LIPITOR [Concomitant]
  8. IMDUR [Concomitant]
  9. FOLIC ACID [Concomitant]
  10. CALCITRATE [Concomitant]
  11. VITAMIN D [Concomitant]
  12. ASAPHEN [Concomitant]
  13. SLOW-FE [Concomitant]
  14. VITALUX /01683901/ [Concomitant]
  15. GLUCONORM [Concomitant]
  16. ATASOL /00020001/ [Concomitant]
  17. DETROL [Concomitant]
  18. SYNTHROID [Concomitant]
  19. OXAZEPAM [Concomitant]
  20. LACTULOSE [Concomitant]
  21. NITROGLYCERIN [Concomitant]

REACTIONS (1)
  - FALL [None]
